FAERS Safety Report 25140661 (Version 1)
Quarter: 2025Q1

REPORT INFORMATION
  Report Type: Spontaneous
  Country: US (occurrence: US)
  Receive Date: 20250331
  Receipt Date: 20250331
  Transmission Date: 20250409
  Serious: No
  Sender: MYLAN
  Company Number: US-MYLANLABS-2025M1024865

PATIENT
  Age: 75 Year
  Sex: Female
  Weight: 42.18 kg

DRUGS (3)
  1. ESTRADIOL TRANSDERMAL SYSTEM [Suspect]
     Active Substance: ESTRADIOL
     Indication: Menopause
     Dosage: 0.05 MILLIGRAM, QD (PER DAY, ONCE WEEKLY)
     Dates: start: 20250316
  2. MIDODRINE [Concomitant]
     Active Substance: MIDODRINE
     Indication: Hypotension
  3. PROZAC [Concomitant]
     Active Substance: FLUOXETINE HYDROCHLORIDE

REACTIONS (2)
  - Off label use [Unknown]
  - Product adhesion issue [Unknown]

NARRATIVE: CASE EVENT DATE: 20250316
